FAERS Safety Report 25257107 (Version 4)
Quarter: 2025Q3

REPORT INFORMATION
  Report Type: Report from Study
  Country: AU (occurrence: AU)
  Receive Date: 20250430
  Receipt Date: 20250912
  Transmission Date: 20251021
  Serious: Yes (Death, Hospitalization, Other)
  Sender: GILEAD
  Company Number: AU-GILEAD-2025-0711170

PATIENT
  Age: 19 Year
  Sex: Female

DRUGS (1)
  1. AXICABTAGENE CILOLEUCEL [Suspect]
     Active Substance: AXICABTAGENE CILOLEUCEL
     Indication: Primary mediastinal large B-cell lymphoma
     Route: 065
     Dates: start: 20250416

REACTIONS (2)
  - Immune effector cell-associated neurotoxicity syndrome [Fatal]
  - Cytokine release syndrome [Recovered/Resolved]

NARRATIVE: CASE EVENT DATE: 20250418
